FAERS Safety Report 6299925-4 (Version None)
Quarter: 2009Q3

REPORT INFORMATION
  Report Type: 
  Country: None (occurrence: None)
  Receive Date: 20090806
  Receipt Date: 20090803
  Transmission Date: 20100115
  Serious: Yes (Other)
  Sender: FDA-Public Use
  Company Number: US-BAYER-200912614BCC

PATIENT
  Age: 58 Year
  Sex: Male
  Weight: 98 kg

DRUGS (3)
  1. ALEVE (CAPLET) [Suspect]
     Indication: DRUG USE FOR UNKNOWN INDICATION
     Dosage: TOTAL DAILY DOSE: 440 MG  UNIT DOSE: 220 MG
     Route: 048
     Dates: start: 20090101
  2. UNKNOWN BLOOD PRESSURE MEDICATIONS [Concomitant]
     Route: 065
  3. UNKNOWN HIGH CHOLESTEROL MEDICATIONS [Concomitant]
     Route: 065

REACTIONS (3)
  - FOAMING AT MOUTH [None]
  - PHARYNGEAL OEDEMA [None]
  - SWELLING FACE [None]
